FAERS Safety Report 7715639-5 (Version None)
Quarter: 2011Q3

REPORT INFORMATION
  Report Type: 
  Country: None (occurrence: None)
  Receive Date: 20110829
  Receipt Date: 20110823
  Transmission Date: 20111222
  Serious: Yes (Other)
  Sender: FDA-Public Use
  Company Number: BR-ROCHE-697984

PATIENT
  Sex: Female
  Weight: 66 kg

DRUGS (29)
  1. RITUXIMAB [Suspect]
     Route: 042
     Dates: start: 20110601, end: 20110601
  2. ARAVA [Concomitant]
  3. LEUCOGEN [Concomitant]
     Indication: ASTHMA
     Dosage: LEOCOGEN
  4. OMEPRAZOLE [Concomitant]
     Indication: PROPHYLAXIS
  5. RITUXIMAB [Suspect]
     Indication: RHEUMATOID ARTHRITIS
     Dosage: FORM: INFUSION. DOSE REPORTED AS 1000 MG/ML
     Route: 042
     Dates: start: 20080801, end: 20080801
  6. DEFLAZACORT [Concomitant]
  7. ENALAPRIL MALEATE [Concomitant]
     Indication: HYPERTENSION
  8. DILACORON [Concomitant]
     Indication: HYPERTENSION
     Dosage: DILACORON AP
  9. MARAX [Concomitant]
     Indication: ASTHMA
  10. RITUXIMAB [Suspect]
     Dosage: DOSE 1000 MG/ML
     Route: 042
     Dates: start: 20090701, end: 20090715
  11. RITUXIMAB [Suspect]
     Dosage: DOSE 1000 MG/ML
     Route: 042
     Dates: start: 20090805, end: 20090820
  12. METHOTREXATE [Concomitant]
     Indication: RHEUMATOID ARTHRITIS
     Dosage: MON TO WED. TECHNOMET
  13. CELEBREX [Concomitant]
  14. TANDRILAX [Concomitant]
  15. PREDNISOLONE [Concomitant]
  16. CLONAZEPAM [Suspect]
     Indication: SLEEP DISORDER
     Route: 065
  17. RITUXIMAB [Suspect]
     Dosage: DOSE: 1000 MG/ML
     Route: 042
     Dates: end: 20100804
  18. RITUXIMAB [Suspect]
     Route: 042
     Dates: start: 20110518, end: 20110518
  19. CHLOROQUINE [Suspect]
     Indication: RHEUMATOID ARTHRITIS
     Route: 065
  20. THEOPHYLLINE [Concomitant]
     Indication: ASTHMA
  21. ALENIA [Concomitant]
     Indication: ASTHMA
  22. CEBRILIN [Concomitant]
  23. SINGULAIR [Concomitant]
     Indication: ASTHMA
  24. LABIRIN [Concomitant]
  25. FLUIR [Concomitant]
  26. CLONAZEPAM [Suspect]
     Dosage: FREQUENCY: 2 TABLTES PER DAY
     Route: 065
  27. CLONAZEPAM [Suspect]
     Route: 065
  28. FOLIC ACID [Concomitant]
     Dosage: 5 TIMES PER ONE WEEK (WED TO SUND)
  29. SPIRIVA [Concomitant]
     Indication: ASTHMA

REACTIONS (26)
  - DEPRESSED MOOD [None]
  - ARTHRALGIA [None]
  - PAIN [None]
  - CONDITION AGGRAVATED [None]
  - HEADACHE [None]
  - GLAUCOMA [None]
  - RHEUMATOID ARTHRITIS [None]
  - ANXIETY [None]
  - INFUSION RELATED REACTION [None]
  - PNEUMONIA [None]
  - BURNING SENSATION [None]
  - DIZZINESS [None]
  - NAUSEA [None]
  - VISUAL IMPAIRMENT [None]
  - EYE PAIN [None]
  - BLOOD GLUCOSE FLUCTUATION [None]
  - HIATUS HERNIA [None]
  - HYPERHIDROSIS [None]
  - JOINT SWELLING [None]
  - WEIGHT DECREASED [None]
  - OEDEMA PERIPHERAL [None]
  - DRUG INEFFECTIVE [None]
  - HYPOGLYCAEMIA [None]
  - EYE DISORDER [None]
  - DUODENAL ULCER [None]
  - INSOMNIA [None]
